FAERS Safety Report 12548199 (Version 1)
Quarter: 2016Q3

REPORT INFORMATION
  Report Type: Spontaneous
  Country: US (occurrence: None)
  Receive Date: 20160711
  Receipt Date: 20160711
  Transmission Date: 20161109
  Serious: Yes (Disabling)
  Sender: FDA-Public Use
  Company Number: None

PATIENT
  Age: 59 Year
  Sex: Male
  Weight: 104.33 kg

DRUGS (9)
  1. FINESTERIDE [Concomitant]
     Active Substance: FINASTERIDE
  2. TESTOSTERONE. [Concomitant]
     Active Substance: TESTOSTERONE
  3. LIFE EXTENSION PROSTATE FORMULA [Concomitant]
  4. VITAMIN D [Concomitant]
     Active Substance: CHOLECALCIFEROL
  5. MULTI VITAMIN AND MINERAL [Concomitant]
  6. ASPIRIN. [Concomitant]
     Active Substance: ASPIRIN
  7. VITAMIN C [Concomitant]
     Active Substance: ASCORBIC ACID
  8. CURCUMIN [Concomitant]
     Active Substance: CURCUMIN
  9. REPATHA [Suspect]
     Active Substance: EVOLOCUMAB
     Indication: BLOOD CHOLESTEROL INCREASED
     Dates: start: 20160520, end: 20160621

REACTIONS (4)
  - Burning sensation [None]
  - Areflexia [None]
  - Muscle fatigue [None]
  - Pain in extremity [None]

NARRATIVE: CASE EVENT DATE: 20160706
